FAERS Safety Report 19839227 (Version 1)
Quarter: 2021Q3

REPORT INFORMATION
  Report Type: Spontaneous
  Country: US (occurrence: US)
  Receive Date: 20210914
  Receipt Date: 20210914
  Transmission Date: 20211014
  Serious: Yes (Hospitalization)
  Sender: FDA-Public Use
  Company Number: None

PATIENT
  Age: 67 Year
  Sex: Female

DRUGS (10)
  1. SILDENAFIL. [Suspect]
     Active Substance: SILDENAFIL
     Indication: PRODUCT USED FOR UNKNOWN INDICATION
     Dosage: UNKNOWN
     Route: 048
  2. FORMOTEROL [Concomitant]
     Active Substance: FORMOTEROL
  3. ARNUITY ELPT INH [Concomitant]
  4. DILTIAZEM. [Concomitant]
     Active Substance: DILTIAZEM
  5. FUROSEMIDE. [Concomitant]
     Active Substance: FUROSEMIDE
  6. PREDNISONE. [Concomitant]
     Active Substance: PREDNISONE
  7. TRELEGY AER ELLIPTA [Concomitant]
  8. ALBUTEROL AER [Concomitant]
     Active Substance: ALBUTEROL
  9. IPRATROPIUM SOL ALB [Concomitant]
  10. POT CHLORIDE [Concomitant]
     Active Substance: POTASSIUM CHLORIDE

REACTIONS (1)
  - Cardiac failure [None]

NARRATIVE: CASE EVENT DATE: 20210907
